FAERS Safety Report 7672099-0 (Version None)
Quarter: 2011Q3

REPORT INFORMATION
  Report Type: 
  Country: None (occurrence: None)
  Receive Date: 20110809
  Receipt Date: 20110802
  Transmission Date: 20111222
  Serious: Yes (Death, Hospitalization, Other)
  Sender: FDA-Public Use
  Company Number: PHHY2009JP33215

PATIENT
  Age: 41 Year
  Sex: Female

DRUGS (6)
  1. GLEEVEC [Suspect]
     Indication: CHRONIC MYELOID LEUKAEMIA
     Dosage: 400 MG,  DAILY
     Route: 048
  2. PREDNISONE [Concomitant]
     Dosage: UNK UKN, UNK
  3. GLEEVEC [Suspect]
     Dosage: 600 MG DAILY
     Route: 048
  4. STEROIDS NOS [Concomitant]
     Dosage: UNK UKN, UNK
  5. GLEEVEC [Suspect]
     Dosage: 200 MG DAILY
     Route: 048
  6. ANTITUSSIVES [Concomitant]
     Dosage: UNK UKN, UNK

REACTIONS (11)
  - CHRONIC MYELOID LEUKAEMIA [None]
  - RASH [None]
  - INTERSTITIAL LUNG DISEASE [None]
  - COUGH [None]
  - LUNG INFECTION PSEUDOMONAL [None]
  - PULMONARY HAEMORRHAGE [None]
  - ALVEOLAR PROTEINOSIS [None]
  - RESPIRATORY FAILURE [None]
  - DYSPNOEA [None]
  - HAEMATOTOXICITY [None]
  - LUNG INFILTRATION [None]
